FAERS Safety Report 26187306 (Version 1)
Quarter: 2025Q4

REPORT INFORMATION
  Report Type: Spontaneous
  Country: EU (occurrence: EU)
  Receive Date: 20251222
  Receipt Date: 20251222
  Transmission Date: 20260118
  Serious: Yes (Death, Other)
  Sender: MERCK SHARP & DOHME LLC
  Company Number: None

PATIENT
  Age: 74 Year
  Sex: Female

DRUGS (7)
  1. KEYTRUDA [Suspect]
     Active Substance: PEMBROLIZUMAB
     Indication: Cervix carcinoma
     Dosage: 200 MG 30 MIN INFUSION / 200 MG AS A 30-MINUTE INFUSION
     Route: 042
     Dates: start: 20251020, end: 20251201
  2. ATORVASTATIN [Concomitant]
     Active Substance: ATORVASTATIN
  3. BEVACIZUMAB [Concomitant]
     Active Substance: BEVACIZUMAB
  4. METFORMIN HYDROCHLORIDE [Concomitant]
     Active Substance: METFORMIN HYDROCHLORIDE
     Dosage: 1+2
  5. CARBOPLATIN [Concomitant]
     Active Substance: CARBOPLATIN
  6. ENALAPRIL MALEATE [Concomitant]
     Active Substance: ENALAPRIL MALEATE
  7. PACLITAXEL [Concomitant]
     Active Substance: PACLITAXEL

REACTIONS (10)
  - Multiple organ dysfunction syndrome [Fatal]
  - Immune-mediated adverse reaction [Fatal]
  - Diarrhoea [Recovered/Resolved]
  - Erythema [Fatal]
  - Pyrexia [Fatal]
  - Acute kidney injury [Fatal]
  - Neutropenia [Recovered/Resolved]
  - Sepsis [Fatal]
  - Nausea [Recovered/Resolved]
  - C-reactive protein increased [Fatal]

NARRATIVE: CASE EVENT DATE: 20251101
